FAERS Safety Report 8453644-4 (Version None)
Quarter: 2012Q2

REPORT INFORMATION
  Report Type: 
  Country: None (occurrence: None)
  Receive Date: 20120620
  Receipt Date: 20120608
  Transmission Date: 20120825
  Serious: No
  Sender: FDA-Public Use
  Company Number: US-PFIZER INC-2012138773

PATIENT
  Sex: Male
  Weight: 70.295 kg

DRUGS (8)
  1. SYNTHROID [Concomitant]
     Indication: HYPOTHYROIDISM
     Dosage: 137 UG, DAILY
  2. NEXIUM [Concomitant]
     Indication: GASTROOESOPHAGEAL REFLUX DISEASE
     Dosage: 40 MG, DAILY
  3. CYTOMEL [Concomitant]
     Indication: HYPOTHYROIDISM
     Dosage: 0.5 UG, 2X/DAY
  4. RESTASIS [Concomitant]
     Indication: DRY EYE
     Dosage: UNK
  5. SOMAVERT [Suspect]
     Indication: ACROMEGALY
     Dosage: 10 MG, DAILY
     Dates: start: 20120509, end: 20120601
  6. LEXAPRO [Concomitant]
     Indication: DEPRESSION
     Dosage: 20 MG, 2X/DAY
  7. ACETYLSALICYLIC ACID [Concomitant]
     Indication: CARDIAC DISORDER
     Dosage: 81 MG, DAILY
  8. CYMBALTA [Concomitant]
     Indication: DEPRESSION
     Dosage: 30 MG,DAILY

REACTIONS (3)
  - DECREASED APPETITE [None]
  - RASH [None]
  - BLOOD GROWTH HORMONE INCREASED [None]
